FAERS Safety Report 15725583 (Version 1)
Quarter: 2018Q4

REPORT INFORMATION
  Report Type: Spontaneous
  Country: GB (occurrence: GB)
  Receive Date: 20181215
  Receipt Date: 20181215
  Transmission Date: 20190205
  Serious: Yes (Life-Threatening, Other)
  Sender: FDA-Public Use
  Company Number: GB-TEVA-2018-GB-986607

PATIENT
  Age: 39 Year
  Sex: Female
  Weight: 53 kg

DRUGS (4)
  1. KETOCONAZOLE. [Concomitant]
     Active Substance: KETOCONAZOLE
     Dosage: 1 DOSAGE FORMS DAILY; APPLY.
     Dates: start: 20181009
  2. CILEST [Concomitant]
     Active Substance: ETHINYL ESTRADIOL\NORGESTIMATE
     Dosage: 1 TABLET ONCE A DAY FOR 21 DAYS FOLLOWED BY 7 DAYS WITHOUT TAKING TABLET. 35MICROGRAM/250MICROGRAM
     Dates: start: 20180817
  3. TERBINAFINE. [Suspect]
     Active Substance: TERBINAFINE
     Indication: ONYCHOMYCOSIS
     Dosage: 250 MILLIGRAM DAILY;
     Route: 048
     Dates: start: 20181009, end: 20181112
  4. ZAPAIN [Concomitant]
     Active Substance: ACETAMINOPHEN\CODEINE PHOSPHATE
     Dosage: 1-2 TABLETS UP TO FOUR TIMES PER DAY. 30MG/500MG.
     Dates: start: 20181112

REACTIONS (3)
  - Neutropenia [Recovering/Resolving]
  - Blood bilirubin increased [Recovering/Resolving]
  - Gingivitis [Recovering/Resolving]

NARRATIVE: CASE EVENT DATE: 20181112
